FAERS Safety Report 9175919 (Version 4)
Quarter: 2013Q4

REPORT INFORMATION
  Report Type: Spontaneous
  Country: DE (occurrence: DE)
  Receive Date: 20130320
  Receipt Date: 20131029
  Transmission Date: 20140711
  Serious: Yes (Other)
  Sender: FDA-Public Use
  Company Number: DE-PFIZER INC-2013083203

PATIENT
  Age: 5 Year
  Sex: Male
  Weight: 26 kg

DRUGS (1)
  1. LYRICA [Suspect]
     Dosage: UNK

REACTIONS (11)
  - Accidental exposure to product by child [Unknown]
  - Electrocardiogram T wave inversion [Unknown]
  - Urine uric acid increased [Unknown]
  - Hyperoxaluria [Unknown]
  - Protein urine [Unknown]
  - Emotional disorder [Unknown]
  - Arrhythmia [Unknown]
  - Urine bilirubin increased [Unknown]
  - Crystal urine present [Unknown]
  - Restlessness [Unknown]
  - Anger [Unknown]
